FAERS Safety Report 7491119-X (Version None)
Quarter: 2011Q2

REPORT INFORMATION
  Report Type: 
  Country: None (occurrence: None)
  Receive Date: 20110519
  Receipt Date: 20110511
  Transmission Date: 20111010
  Serious: Yes (Hospitalization)
  Sender: FDA-Public Use
  Company Number: FR-ROCHE-777146

PATIENT
  Sex: Female

DRUGS (13)
  1. CARBOPLATIN [Concomitant]
     Dates: start: 20101009
  2. CARBOPLATIN [Concomitant]
     Dates: start: 20101015
  3. AVASTIN [Suspect]
     Dosage: 7.5 MG/KG
     Route: 042
     Dates: start: 20110315
  4. CARBOPLATIN [Concomitant]
     Dates: start: 20110104
  5. AVASTIN [Suspect]
     Indication: LUNG ADENOCARCINOMA
     Route: 042
     Dates: start: 20101009
  6. AVASTIN [Suspect]
     Dosage: 7.5 MG/KG
     Route: 042
     Dates: start: 20110405, end: 20110405
  7. CARBOPLATIN [Concomitant]
     Dates: start: 20101214
  8. AVASTIN [Suspect]
     Route: 042
     Dates: start: 20110104
  9. PLATINUM [Concomitant]
  10. AVASTIN [Suspect]
     Route: 042
     Dates: start: 20101015
  11. AVASTIN [Suspect]
     Dosage: 7.5 MG/KG
     Route: 042
     Dates: start: 20110214
  12. NAVELBINE [Concomitant]
  13. AVASTIN [Suspect]
     Route: 042
     Dates: start: 20101214

REACTIONS (1)
  - LUNG ABSCESS [None]
